FAERS Safety Report 16292064 (Version 1)
Quarter: 2019Q2

REPORT INFORMATION
  Report Type: Report from Study
  Country: US (occurrence: US)
  Receive Date: 20190509
  Receipt Date: 20190509
  Transmission Date: 20190711
  Serious: Yes (Hospitalization)
  Sender: FDA-Public Use
  Company Number: US-ALKERMES INC.-ALK-2018-002481

PATIENT
  Age: 59 Year
  Sex: Male

DRUGS (14)
  1. BLINDED PLACEBO [Suspect]
     Active Substance: INVESTIGATIONAL PRODUCT
     Indication: SUBSTANCE USE DISORDER
     Dosage: UNK UNK, QMO
     Dates: start: 20180222
  2. METHOCARBAMOL. [Concomitant]
     Active Substance: METHOCARBAMOL
     Indication: PRODUCT USED FOR UNKNOWN INDICATION
     Dosage: UNK
  3. CYANOCOBALAMIN. [Concomitant]
     Active Substance: CYANOCOBALAMIN
     Indication: PRODUCT USED FOR UNKNOWN INDICATION
     Dosage: UNK
  4. BLINDED BUPROPION [Suspect]
     Active Substance: BUPROPION
     Dosage: UNK MG, QD
     Route: 048
     Dates: start: 20180222
  5. IBUPROFEN. [Concomitant]
     Active Substance: IBUPROFEN
     Indication: PRODUCT USED FOR UNKNOWN INDICATION
     Dosage: UNK
  6. VENLAFAXINE [Concomitant]
     Active Substance: VENLAFAXINE HYDROCHLORIDE
     Indication: PRODUCT USED FOR UNKNOWN INDICATION
     Dosage: UNK
  7. BLINDED PLACEBO [Suspect]
     Active Substance: INVESTIGATIONAL PRODUCT
     Dosage: UNK MG, QD
     Route: 048
     Dates: start: 20180222
  8. BLINDED BUPROPION [Suspect]
     Active Substance: BUPROPION
     Indication: SUBSTANCE USE DISORDER
     Dosage: UNK UNK, QMO
     Dates: start: 20180222
  9. VIVITROL [Suspect]
     Active Substance: NALTREXONE
     Dosage: UNK MG, QD
     Route: 048
     Dates: start: 20180222
  10. CARBOXYMETHYLCELLULOSE [Concomitant]
     Active Substance: CARBOXYMETHYLCELLULOSE
     Indication: EYE DISORDER
     Dosage: UNK
  11. NALOXONE HCL [Concomitant]
     Active Substance: NALOXONE HYDROCHLORIDE
     Indication: PRODUCT USED FOR UNKNOWN INDICATION
     Dosage: UNK
  12. ERGOCALCIFEROL. [Concomitant]
     Active Substance: ERGOCALCIFEROL
     Indication: PRODUCT USED FOR UNKNOWN INDICATION
     Dosage: UNK
  13. VIVITROL [Suspect]
     Active Substance: NALTREXONE
     Indication: SUBSTANCE USE DISORDER
     Dosage: UNK UNK, QMO
     Dates: start: 20180222
  14. LIDOCAINE. [Concomitant]
     Active Substance: LIDOCAINE
     Indication: PRODUCT USED FOR UNKNOWN INDICATION
     Dosage: UNK

REACTIONS (3)
  - Homicidal ideation [Recovered/Resolved]
  - Pain [Recovered/Resolved]
  - Off label use [Unknown]

NARRATIVE: CASE EVENT DATE: 20180426
